FAERS Safety Report 6913941-8 (Version None)
Quarter: 2010Q3

REPORT INFORMATION
  Report Type: 
  Country: None (occurrence: None)
  Receive Date: 20100809
  Receipt Date: 20100730
  Transmission Date: 20110219
  Serious: Yes (Hospitalization)
  Sender: FDA-Public Use
  Company Number: BR-ASTRAZENECA-2010SE36249

PATIENT
  Age: 90 Year
  Sex: Female
  Weight: 57 kg

DRUGS (6)
  1. ATACAND HCT [Suspect]
     Indication: HYPERTENSION
     Dosage: 16/12.5 MG, DAILY
     Route: 048
     Dates: start: 20060101, end: 20100701
  2. ASA PEDIATRIC [Concomitant]
     Indication: CAROTID ARTERY OCCLUSION
     Dosage: DAILY
     Route: 048
     Dates: start: 20070101
  3. SIMVASTATIN [Concomitant]
     Indication: HYPERCHOLESTEROLAEMIA
     Route: 048
     Dates: start: 20080101
  4. ATORVASTATIN [Concomitant]
     Indication: HYPERCHOLESTEROLAEMIA
     Route: 048
  5. VEROTINA [Concomitant]
     Indication: DEPRESSION
     Route: 048
     Dates: start: 20090101
  6. DILTIAZEM [Concomitant]
     Indication: HYPERTENSION
     Route: 048
     Dates: start: 20100301

REACTIONS (8)
  - BLOOD CHOLESTEROL INCREASED [None]
  - BLOOD PRESSURE INADEQUATELY CONTROLLED [None]
  - CAROTID ARTERY OCCLUSION [None]
  - DEPRESSION [None]
  - DRUG INEFFECTIVE [None]
  - HYPOTHYROIDISM [None]
  - SWELLING [None]
  - SYNCOPE [None]
